FAERS Safety Report 12477175 (Version 1)
Quarter: 2016Q2

REPORT INFORMATION
  Report Type: Spontaneous
  Country: CA (occurrence: CA)
  Receive Date: 20160617
  Receipt Date: 20160617
  Transmission Date: 20160815
  Serious: Yes (Life-Threatening, Hospitalization, Disabling, Other)
  Sender: FDA-Public Use
  Company Number: CA-ASTRAZENECA-2016SE62400

PATIENT
  Age: 55 Year
  Sex: Male

DRUGS (14)
  1. IRESSA [Suspect]
     Active Substance: GEFITINIB
     Indication: LUNG ADENOCARCINOMA
     Route: 048
  2. ATORVASTATIN CALCIUM. [Concomitant]
     Active Substance: ATORVASTATIN CALCIUM
  3. DOCUSATE SODIUM. [Concomitant]
     Active Substance: DOCUSATE SODIUM
  4. IBUPROFEN. [Concomitant]
     Active Substance: IBUPROFEN
  5. MULTIVITAMINE(S) [Concomitant]
  6. NORTRIPTYLINE [Concomitant]
     Active Substance: NORTRIPTYLINE
  7. ACETAMINOPHEN. [Concomitant]
     Active Substance: ACETAMINOPHEN
  8. BISACODYL. [Concomitant]
     Active Substance: BISACODYL
  9. DEXAMETHASONE. [Concomitant]
     Active Substance: DEXAMETHASONE
  10. ENOXAPARIN [Concomitant]
     Active Substance: ENOXAPARIN
  11. MAGNESIUM HYDROXIDE. [Concomitant]
     Active Substance: MAGNESIUM HYDROXIDE
  12. PREGABALIN. [Concomitant]
     Active Substance: PREGABALIN
  13. VITAMIN D [Concomitant]
     Active Substance: CHOLECALCIFEROL
  14. HYDROMORPHONE [Concomitant]
     Active Substance: HYDROMORPHONE

REACTIONS (6)
  - Muscular weakness [Unknown]
  - Paraesthesia [Unknown]
  - Malaise [Unknown]
  - Dyspnoea [Unknown]
  - Dysphagia [Unknown]
  - Respiratory distress [Unknown]
